FAERS Safety Report 13836279 (Version 2)
Quarter: 2017Q4

REPORT INFORMATION
  Report Type: Report from Study
  Country: AU (occurrence: AU)
  Receive Date: 20170804
  Receipt Date: 20171213
  Transmission Date: 20180320
  Serious: Yes (Hospitalization, Other)
  Sender: FDA-Public Use
  Company Number: PHNR2004AU01764

PATIENT
  Age: 27 Year
  Sex: Male
  Weight: 119 kg

DRUGS (15)
  1. CLOZARIL [Suspect]
     Active Substance: CLOZAPINE
     Dosage: UNK
     Route: 048
  2. METFORMIN [Suspect]
     Active Substance: METFORMIN HYDROCHLORIDE
     Indication: PRODUCT USED FOR UNKNOWN INDICATION
     Route: 065
  3. DOBUTAMINE HYDROCHLORIDE. [Suspect]
     Active Substance: DOBUTAMINE HYDROCHLORIDE
     Indication: PRODUCT USED FOR UNKNOWN INDICATION
     Route: 065
  4. ATROPINE. [Suspect]
     Active Substance: ATROPINE
     Indication: PRODUCT USED FOR UNKNOWN INDICATION
     Route: 065
  5. AMITRIPTYLINE [Concomitant]
     Active Substance: AMITRIPTYLINE
     Indication: PRODUCT USED FOR UNKNOWN INDICATION
     Dosage: 25 MG, QHS (NIGHT)
     Route: 065
  6. CLOZARIL [Suspect]
     Active Substance: CLOZAPINE
     Indication: SCHIZOPHRENIA
     Dosage: 900 MG (12.5 -1000 MG/DAY), QD
     Route: 048
     Dates: start: 20020712, end: 20041208
  7. CLOZARIL [Suspect]
     Active Substance: CLOZAPINE
     Dosage: 675 MG, UNK
     Route: 048
  8. PERINDOPRIL [Suspect]
     Active Substance: PERINDOPRIL
     Indication: PRODUCT USED FOR UNKNOWN INDICATION
     Dosage: 5 MG, QD
     Route: 048
     Dates: start: 201705
  9. DIAZEPAM. [Concomitant]
     Active Substance: DIAZEPAM
     Indication: PRODUCT USED FOR UNKNOWN INDICATION
     Dosage: 5 MG (TDN), PRN
     Route: 065
  10. CLOZARIL [Suspect]
     Active Substance: CLOZAPINE
     Dosage: 50 MG AND 600 MG
     Route: 065
  11. CLOZARIL [Suspect]
     Active Substance: CLOZAPINE
     Dosage: 700 MG, UNK
     Route: 065
  12. BISOPROLOL [Suspect]
     Active Substance: BISOPROLOL
     Indication: PRODUCT USED FOR UNKNOWN INDICATION
     Dosage: 5 MG, QD
     Route: 048
     Dates: start: 201705
  13. TEMAZEPAM. [Concomitant]
     Active Substance: TEMAZEPAM
     Indication: PRODUCT USED FOR UNKNOWN INDICATION
     Dosage: UNK UNK, PRN
     Route: 065
  14. CLOZARIL [Suspect]
     Active Substance: CLOZAPINE
     Dosage: 100 MG MORNING AND 600 MG NIGHT
     Route: 065
  15. CLOZARIL [Suspect]
     Active Substance: CLOZAPINE
     Dosage: 75 MG MORNING AND 600 MG NIGHT
     Route: 065

REACTIONS (32)
  - Psychotic disorder [Not Recovered/Not Resolved]
  - Myocarditis [Unknown]
  - Heart rate increased [Unknown]
  - Obesity [Unknown]
  - Palpitations [Unknown]
  - Chest pain [Recovering/Resolving]
  - Antipsychotic drug level increased [Unknown]
  - Insulin resistance [Unknown]
  - Drooling [Not Recovered/Not Resolved]
  - Cardiac failure [Unknown]
  - Schizophrenia [Recovering/Resolving]
  - Ejection fraction decreased [Unknown]
  - Tangentiality [Unknown]
  - Mental disorder [Unknown]
  - Anxiety [Unknown]
  - Wheezing [Unknown]
  - Blood triglycerides increased [Unknown]
  - Blood pressure increased [Unknown]
  - Hallucination [Unknown]
  - Tachycardia [Unknown]
  - Mental disorder [Recovering/Resolving]
  - Salivary hypersecretion [Not Recovered/Not Resolved]
  - Abnormal behaviour [Unknown]
  - Weight decreased [Unknown]
  - Dysprosody [Unknown]
  - Delusion [Unknown]
  - Alanine aminotransferase increased [Unknown]
  - Aspartate aminotransferase increased [Unknown]
  - Transferrin saturation decreased [Unknown]
  - Sinus tachycardia [Unknown]
  - Cardiomyopathy [Unknown]
  - Cyclothymic disorder [Unknown]

NARRATIVE: CASE EVENT DATE: 20041206
